FAERS Safety Report 5833630-0 (Version None)
Quarter: 2008Q3

REPORT INFORMATION
  Report Type: 
  Country: None (occurrence: None)
  Receive Date: 20080805
  Receipt Date: 20080725
  Transmission Date: 20090109
  Serious: Yes (Hospitalization)
  Sender: FDA-Public Use
  Company Number: JP-JNJFOC-20080706555

PATIENT
  Sex: Male
  Weight: 55.5 kg

DRUGS (11)
  1. PREZISTA [Suspect]
     Indication: HIV INFECTION
     Route: 048
  2. TRUVADA [Concomitant]
     Indication: HIV INFECTION
     Route: 048
  3. NORVIR [Concomitant]
     Indication: HIV INFECTION
     Route: 048
  4. ZITHROMAX [Concomitant]
     Indication: PROPHYLAXIS
     Route: 048
  5. COTRIM [Concomitant]
     Indication: ANTIFUNGAL PROPHYLAXIS
     Route: 048
  6. ATARAX [Concomitant]
     Indication: INSOMNIA
     Route: 048
  7. MYSER [Concomitant]
     Indication: RASH
     Route: 061
  8. NIZORAL [Concomitant]
     Indication: RASH
     Route: 061
  9. ALLELOCK [Concomitant]
     Indication: RASH
     Route: 048
  10. DALACIN T [Concomitant]
     Indication: RASH
     Route: 061
  11. DIFLUCAN [Concomitant]
     Indication: CRYPTOCOCCOSIS
     Route: 048

REACTIONS (1)
  - MENINGITIS CRYPTOCOCCAL [None]
